FAERS Safety Report 10290758 (Version 2)
Quarter: 2014Q3

REPORT INFORMATION
  Report Type: Spontaneous
  Country: US (occurrence: US)
  Receive Date: 20140710
  Receipt Date: 20140730
  Transmission Date: 20150326
  Serious: Yes (Hospitalization)
  Sender: FDA-Public Use
  Company Number: US-PFIZER INC-2014190843

PATIENT
  Age: 73 Year
  Sex: Female
  Weight: 62.6 kg

DRUGS (6)
  1. AMLODIPINE [Concomitant]
     Active Substance: AMLODIPINE BESYLATE
     Indication: BLOOD PRESSURE ABNORMAL
     Dosage: UNK
  2. XELJANZ [Suspect]
     Active Substance: TOFACITINIB CITRATE
     Indication: RHEUMATOID ARTHRITIS
     Dosage: UNK
     Dates: start: 201402
  3. FOLIC ACID. [Concomitant]
     Active Substance: FOLIC ACID
     Dosage: UNK
  4. METHOTREXATE [Concomitant]
     Active Substance: METHOTREXATE
     Dosage: 6 DF (THREE IN THE MORNING AND THREE AT NIGHT), EVERY SUNDAY
  5. XELJANZ [Suspect]
     Active Substance: TOFACITINIB CITRATE
     Dosage: 5 MG, 2X/DAY
     Route: 048
     Dates: start: 20140313, end: 20140505
  6. PROLIA [Concomitant]
     Active Substance: DENOSUMAB
     Dosage: UNK, EVERY SIX MONTHS

REACTIONS (8)
  - Pyrexia [Recovered/Resolved]
  - Pollakiuria [Recovered/Resolved]
  - Chills [Recovered/Resolved]
  - Urinary tract infection [Recovering/Resolving]
  - Malaise [Recovered/Resolved]
  - Drug intolerance [Unknown]
  - White blood cell count increased [Not Recovered/Not Resolved]
  - Dizziness [Recovered/Resolved]

NARRATIVE: CASE EVENT DATE: 2014
